FAERS Safety Report 17848167 (Version 2)
Quarter: 2020Q2

REPORT INFORMATION
  Report Type: Spontaneous
  Country: US (occurrence: US)
  Receive Date: 20200601
  Receipt Date: 20200612
  Transmission Date: 20200714
  Serious: No
  Sender: FDA-Public Use
  Company Number: US-TAKEDA-2020TUS023867

PATIENT
  Age: 65 Year
  Sex: Male
  Weight: 102.04 kg

DRUGS (1)
  1. ENTYVIO [Suspect]
     Active Substance: VEDOLIZUMAB
     Indication: COLITIS ULCERATIVE
     Dosage: 300 MILLIGRAM
     Route: 042
     Dates: start: 20190919, end: 20200601

REACTIONS (13)
  - Blood alkaline phosphatase increased [Unknown]
  - Blood creatinine increased [Unknown]
  - Faecal calprotectin increased [Unknown]
  - Aspartate aminotransferase increased [Unknown]
  - Blood glucose increased [Unknown]
  - Eosinophil percentage increased [Recovered/Resolved]
  - Immunoglobulins increased [Unknown]
  - Blood urea increased [Unknown]
  - Blood sodium increased [Unknown]
  - White blood cell count abnormal [Unknown]
  - Gamma-glutamyltransferase increased [Unknown]
  - Alanine aminotransferase increased [Unknown]
  - Albumin globulin ratio decreased [Unknown]

NARRATIVE: CASE EVENT DATE: 20191008
